FAERS Safety Report 8956108 (Version 1)
Quarter: 2012Q4

REPORT INFORMATION
  Report Type: 
  Country: US (occurrence: US)
  Receive Date: 20121210
  Receipt Date: 20121210
  Transmission Date: 20130627
  Serious: Yes (Other)
  Sender: FDA-Public Use
  Company Number: US-SHIRE-ALL1-2012-05853

PATIENT
  Sex: Female
  Weight: 62.59 kg

DRUGS (2)
  1. VYVANSE [Suspect]
     Indication: ATTENTION DEFICIT/HYPERACTIVITY DISORDER
     Dosage: 40 mg, 1x/day:qd
     Route: 048
     Dates: start: 201201, end: 20121125
  2. PRISTIQ [Concomitant]
     Indication: DEPRESSION
     Dosage: 100 mg, 1x/day:qd
     Route: 048

REACTIONS (1)
  - Eructation [Not Recovered/Not Resolved]
